FAERS Safety Report 11446388 (Version 1)
Quarter: 2015Q3

REPORT INFORMATION
  Report Type: Other
  Country: GB (occurrence: GB)
  Receive Date: 20150902
  Receipt Date: 20150902
  Transmission Date: 20151125
  Serious: Yes (Life-Threatening, Disabling)
  Sender: FDA-Public Use
  Company Number: GB-MYLANLABS-2015M1028661

PATIENT

DRUGS (5)
  1. ATORVASTATIN [Suspect]
     Active Substance: ATORVASTATIN
     Indication: CARDIOVASCULAR EVENT PROPHYLAXIS
     Dosage: 20 MG, UNK
     Route: 048
     Dates: start: 20150304
  2. ATORVASTATIN [Suspect]
     Active Substance: ATORVASTATIN
     Indication: TRANSIENT ISCHAEMIC ATTACK
     Dosage: 10 MG, UNK
     Route: 048
     Dates: start: 20130426, end: 20150304
  3. ADCAL-D3 [Concomitant]
     Active Substance: CALCIUM CARBONATE\CHOLECALCIFEROL
     Indication: BONE DISORDER
     Dosage: 2 DF, BID
     Route: 048
     Dates: start: 20130727
  4. SIMVASTATIN. [Suspect]
     Active Substance: SIMVASTATIN
     Indication: TRANSIENT ISCHAEMIC ATTACK
     Dosage: 40 MG, UNK
     Route: 048
     Dates: start: 20090810, end: 20130424
  5. LANSOPRAZOLE. [Concomitant]
     Active Substance: LANSOPRAZOLE
     Indication: PROPHYLAXIS
     Dosage: 30 MG, UNK (CONTINUING)
     Route: 048
     Dates: start: 20060131

REACTIONS (4)
  - Lower respiratory tract infection [Not Recovered/Not Resolved]
  - Crepitations [Not Recovered/Not Resolved]
  - Pulmonary fibrosis [Not Recovered/Not Resolved]
  - Bronchiectasis [Not Recovered/Not Resolved]

NARRATIVE: CASE EVENT DATE: 201501
